FAERS Safety Report 7375814 (Version 4)
Quarter: 2012Q4

REPORT INFORMATION
  Report Type: 
  Country: US (occurrence: US)
  Receive Date: 20100504
  Receipt Date: 20120928
  Transmission Date: 20130627
  Serious: Yes (Hospitalization)
  Sender: FDA-Public Use
  Company Number: US-BAYER-201020423NA

PATIENT
  Age: 48 Year
  Sex: Female
  Weight: 81.82 kg

DRUGS (31)
  1. YASMIN [Suspect]
     Indication: OVARIAN CYST
     Route: 048
     Dates: start: 20041020, end: 20051129
  2. YASMIN [Suspect]
     Indication: OVARIAN CYST
     Dosage: UNK
     Route: 048
     Dates: start: 20041216, end: 20050112
  3. YASMIN [Suspect]
     Indication: OVARIAN CYST
     Dosage: UNK
     Dates: start: 20050219, end: 20050319
  4. YASMIN [Suspect]
     Indication: OVARIAN CYST
     Dosage: UNK
     Dates: start: 20050615, end: 20051008
  5. ASPIRIN [Concomitant]
     Indication: CEREBROVASCULAR ACCIDENT PROPHYLAXIS
     Route: 048
  6. VERAPAMIL SLOW RELEASE [Concomitant]
     Indication: RAYNAUD^S PHENOMENON
     Route: 048
  7. LIPITOR [Concomitant]
     Indication: CEREBROVASCULAR ACCIDENT PROPHYLAXIS
     Route: 048
  8. FERROUS SULFATE [Concomitant]
     Indication: MENSTRUAL DISORDER
     Route: 048
  9. NICODERM [Concomitant]
  10. NIMODIPINE [Concomitant]
  11. FLONASE [Concomitant]
     Dosage: UNK
     Route: 045
     Dates: start: 20050425
  12. FLONASE [Concomitant]
     Dosage: UNK
     Dates: start: 20051008
  13. ALLEGRA [Concomitant]
     Dosage: 60 mg, UNK
     Dates: start: 20050126
  14. ALLEGRA [Concomitant]
     Dosage: 60 mg, UNK
     Dates: start: 20050425
  15. LOVENOX [Concomitant]
  16. TESSALON PERLES [Concomitant]
     Route: 048
  17. PHENERGAN [Concomitant]
     Route: 048
  18. ENTEX [Concomitant]
  19. AMOXICILLIN [Concomitant]
     Dosage: 250 mg, TID
     Route: 048
  20. SEPTRA DS [Concomitant]
     Dosage: UNK UNK, BID
     Route: 048
  21. BIAXIN [Concomitant]
     Dosage: UNK UNK, BID
     Route: 048
  22. E-MYCIN [Concomitant]
     Dosage: 333 mg, UNK
     Route: 048
  23. AMOX [Concomitant]
     Route: 048
  24. TYLENOL [Concomitant]
     Route: 048
  25. UNCODEABLE ^UNCLASSIFIABLE^ [Concomitant]
     Indication: COUGH
     Dosage: 10 ml, UNK
     Route: 048
  26. SALINE [SODIUM CHLORIDE] [Concomitant]
     Dosage: UNK UNK, Q2HR
     Route: 048
  27. ADVIL [Concomitant]
     Dosage: UNK
     Dates: start: 20050615
  28. DOXYCYCLINE [Concomitant]
     Dosage: 10 mg, UNK
     Dates: start: 20050112
  29. GUAIFENESIN/CODEINE [Concomitant]
     Dosage: UNK
     Dates: start: 20050112
  30. NEOMYCIN [Concomitant]
     Dosage: UNK
     Dates: start: 20050112
  31. FEXOFENADINE [Concomitant]
     Dosage: 60 mg, UNK
     Dates: start: 20051102

REACTIONS (6)
  - Ischaemic stroke [Unknown]
  - Headache [Unknown]
  - Dysarthria [Unknown]
  - Aphasia [Unknown]
  - Cerebral infarction [Unknown]
  - Migraine [None]
